FAERS Safety Report 14646375 (Version 2)
Quarter: 2018Q3

REPORT INFORMATION
  Report Type: Spontaneous
  Country: JP (occurrence: JP)
  Receive Date: 20180316
  Receipt Date: 20180724
  Transmission Date: 20181010
  Serious: Yes (Life-Threatening, Other)
  Sender: FDA-Public Use
  Company Number: JP-BEH-2018088808

PATIENT
  Age: 73 Year
  Sex: Male
  Weight: 64 kg

DRUGS (5)
  1. KAYTWO N [Suspect]
     Active Substance: MENATETRENONE
     Indication: HAEMOSTASIS
     Dosage: 10 MG, TOT
     Route: 042
     Dates: start: 20180117, end: 20180117
  2. KCENTRA [Suspect]
     Active Substance: COAGULATION FACTOR IX HUMAN\COAGULATION FACTOR VII HUMAN\COAGULATION FACTOR X HUMAN\PROTEIN C\PROTEIN S HUMAN\PROTHROMBIN
     Indication: HAEMOSTASIS
     Dosage: 1600 IU, SINGLE
     Route: 042
     Dates: start: 20180117, end: 20180117
  3. LIXIANA [Concomitant]
     Active Substance: EDOXABAN TOSYLATE
     Dosage: 60 MG, UNK
     Route: 065
     Dates: start: 20180222
  4. WARFARIN [Concomitant]
     Active Substance: WARFARIN
     Dosage: 3.5 MG, UNK
     Route: 048
     Dates: end: 20180116
  5. KCENTRA [Suspect]
     Active Substance: COAGULATION FACTOR IX HUMAN\COAGULATION FACTOR VII HUMAN\COAGULATION FACTOR X HUMAN\PROTEIN C\PROTEIN S HUMAN\PROTHROMBIN
     Indication: CEREBRAL HAEMORRHAGE

REACTIONS (3)
  - Cerebral artery embolism [Recovered/Resolved with Sequelae]
  - Carotid artery occlusion [Unknown]
  - Hemiplegia [Unknown]

NARRATIVE: CASE EVENT DATE: 20180125
